FAERS Safety Report 13277633 (Version 1)
Quarter: 2017Q1

REPORT INFORMATION
  Report Type: Spontaneous
  Country: SE (occurrence: SE)
  Receive Date: 20170228
  Receipt Date: 20170228
  Transmission Date: 20170428
  Serious: Yes (Death, Hospitalization)
  Sender: FDA-Public Use
  Company Number: SE-PFIZER INC-2017084845

PATIENT
  Age: 90 Year
  Sex: Male

DRUGS (6)
  1. FRAGMIN [Suspect]
     Active Substance: DALTEPARIN SODIUM
     Indication: PULMONARY EMBOLISM
  2. WARAN [Suspect]
     Active Substance: WARFARIN SODIUM
     Indication: EMBOLISM ARTERIAL
     Dosage: 2.5 MG, UNK
     Route: 048
     Dates: start: 20170206, end: 20170211
  3. WARAN [Suspect]
     Active Substance: WARFARIN SODIUM
     Indication: PULMONARY EMBOLISM
  4. HEPARIN LEO [Suspect]
     Active Substance: HEPARIN SODIUM
     Indication: EMBOLISM ARTERIAL
     Dosage: 5000 IU/ML, UNK
     Route: 042
     Dates: start: 20170203, end: 20170204
  5. HEPARIN LEO [Suspect]
     Active Substance: HEPARIN SODIUM
     Indication: PULMONARY EMBOLISM
  6. FRAGMIN [Suspect]
     Active Substance: DALTEPARIN SODIUM
     Indication: EMBOLISM ARTERIAL
     Dosage: 7500 IU, UNK
     Route: 058
     Dates: start: 20170204, end: 20170211

REACTIONS (1)
  - Cerebral haemorrhage [Fatal]

NARRATIVE: CASE EVENT DATE: 20170211
